FAERS Safety Report 20323731 (Version 1)
Quarter: 2022Q1

REPORT INFORMATION
  Report Type: Spontaneous
  Country: CH (occurrence: CH)
  Receive Date: 20220111
  Receipt Date: 20220111
  Transmission Date: 20220424
  Serious: Yes (Other)
  Sender: FDA-Public Use
  Company Number: CH-ABBVIE-22K-151-4227838-00

PATIENT
  Age: 57 Year
  Sex: Male
  Weight: 87 kg

DRUGS (3)
  1. HUMIRA [Suspect]
     Active Substance: ADALIMUMAB
     Indication: Ankylosing spondylitis
     Dosage: DOSE NOT SPECIFIED
     Route: 058
     Dates: start: 2014, end: 202107
  2. PFIZER-BIONTECH COVID-19 VACCINE [Suspect]
     Active Substance: TOZINAMERAN
     Indication: COVID-19 immunisation
     Dosage: 2 DOSES IN TOTAL
     Route: 030
     Dates: start: 20210427, end: 20210427
  3. PFIZER-BIONTECH COVID-19 VACCINE [Suspect]
     Active Substance: TOZINAMERAN
     Dosage: 2 DOSES IN TOTAL
     Route: 030
     Dates: start: 20210526, end: 20210526

REACTIONS (7)
  - Tubulointerstitial nephritis [Unknown]
  - Granuloma [Unknown]
  - Alveolitis [Unknown]
  - Renal failure [Unknown]
  - Fatigue [Unknown]
  - Nausea [Unknown]
  - Influenza [Unknown]

NARRATIVE: CASE EVENT DATE: 20210409
